FAERS Safety Report 12935723 (Version 1)
Quarter: 2016Q4

REPORT INFORMATION
  Report Type: Spontaneous
  Country: US (occurrence: US)
  Receive Date: 20161114
  Receipt Date: 20161114
  Transmission Date: 20170207
  Serious: Yes (Death, Other)
  Sender: FDA-Public Use
  Company Number: US-UNITED THERAPEUTICS-UNT-2016-017310

PATIENT
  Age: 20 Year
  Sex: Female
  Weight: 71.66 kg

DRUGS (1)
  1. TYVASO [Suspect]
     Active Substance: TREPROSTINIL
     Indication: PULMONARY HYPERTENSION
     Dosage: 54-72 ?G, QID
     Dates: start: 20100210

REACTIONS (3)
  - Death [Fatal]
  - Circulatory collapse [Unknown]
  - Product use issue [Unknown]

NARRATIVE: CASE EVENT DATE: 20161105
